FAERS Safety Report 9766714 (Version 1)
Quarter: 2013Q4

REPORT INFORMATION
  Report Type: Spontaneous
  Country: US (occurrence: US)
  Receive Date: 20131217
  Receipt Date: 20131217
  Transmission Date: 20140711
  Serious: No
  Sender: FDA-Public Use
  Company Number: US-BIOGENIDEC-2013BI118094

PATIENT
  Age: 42 Year
  Sex: Male

DRUGS (11)
  1. TECFIDERA [Suspect]
     Indication: MULTIPLE SCLEROSIS
     Route: 048
     Dates: start: 201306
  2. ZANAFLEX [Concomitant]
  3. TOPAMAX [Concomitant]
  4. NEXIUM [Concomitant]
  5. CRESTOR [Concomitant]
  6. ZOLOFT [Concomitant]
  7. AMBIEN [Concomitant]
  8. VITAMIN B [Concomitant]
  9. VITAMIN B-12 [Concomitant]
  10. TYLENOL [Concomitant]
  11. MOTRIN [Concomitant]

REACTIONS (3)
  - Petechiae [Unknown]
  - Rash [Unknown]
  - Pruritus [Unknown]
